FAERS Safety Report 5870308-1 (Version None)
Quarter: 2008Q3

REPORT INFORMATION
  Report Type: 
  Country: None (occurrence: None)
  Receive Date: 20080904
  Receipt Date: 20070831
  Transmission Date: 20090109
  Serious: No
  Sender: FDA-Public Use
  Company Number: US-BRISTOL-MYERS SQUIBB COMPANY-13895396

PATIENT
  Sex: Male
  Weight: 85 kg

DRUGS (6)
  1. DEFINITY [Suspect]
     Route: 042
     Dates: start: 20070831, end: 20070831
  2. COREG [Concomitant]
  3. LISINOPRIL [Concomitant]
  4. PLAVIX [Concomitant]
  5. SIMVASTIN [Concomitant]
  6. ASPIRIN [Concomitant]

REACTIONS (1)
  - MUSCLE SPASMS [None]
